FAERS Safety Report 5120148-6 (Version None)
Quarter: 2006Q3

REPORT INFORMATION
  Report Type: 
  Country: None (occurrence: None)
  Receive Date: 20060928
  Receipt Date: 20060825
  Transmission Date: 20061208
  Serious: Yes (Other)
  Sender: FDA-Public Use
  Company Number: TNZFR200600103

PATIENT
  Age: 29 Year
  Sex: Female

DRUGS (1)
  1. INNOHEP [Suspect]
     Dosage: SUBCUTANEOUS
     Route: 058
     Dates: start: 20060818

REACTIONS (4)
  - CHEST PAIN [None]
  - DYSKINESIA [None]
  - HEMIPARESIS [None]
  - MEMORY IMPAIRMENT [None]
